FAERS Safety Report 8437482-4 (Version None)
Quarter: 2012Q2

REPORT INFORMATION
  Report Type: 
  Country: None (occurrence: None)
  Receive Date: 20120614
  Receipt Date: 20120601
  Transmission Date: 20120825
  Serious: No
  Sender: FDA-Public Use
  Company Number: US-ASTRAZENECA-2012SE36712

PATIENT

DRUGS (2)
  1. LISINOPRIL [Suspect]
     Dosage: GENERIC CAME FROM INDIA
     Route: 048
  2. AROMASIN [Concomitant]

REACTIONS (1)
  - BLOOD PRESSURE INADEQUATELY CONTROLLED [None]
